FAERS Safety Report 6509799-1 (Version None)
Quarter: 2009Q4

REPORT INFORMATION
  Report Type: 
  Country: None (occurrence: None)
  Receive Date: 20091221
  Receipt Date: 20091221
  Transmission Date: 20100525
  Serious: No
  Sender: FDA-Public Use
  Company Number: None

PATIENT
  Sex: Female
  Weight: 104.3273 kg

DRUGS (1)
  1. MIRENA [Suspect]
     Indication: CONTRACEPTION
     Dosage: INSERTED FOR 5 YEARS VAG
     Route: 067
     Dates: start: 20060201, end: 20070815

REACTIONS (3)
  - FEMALE STERILISATION [None]
  - PAIN [None]
  - QUALITY OF LIFE DECREASED [None]
